FAERS Safety Report 5519907-7 (Version None)
Quarter: 2007Q4

REPORT INFORMATION
  Report Type: 
  Country: None (occurrence: None)
  Receive Date: 20071116
  Receipt Date: 20071018
  Transmission Date: 20080405
  Serious: No
  Sender: FDA-Public Use
  Company Number: A0688513A

PATIENT
  Age: 89 Year
  Sex: Female

DRUGS (4)
  1. COREG CR [Suspect]
     Dosage: 10MG PER DAY
     Route: 048
     Dates: start: 20070814
  2. ATIVAN [Concomitant]
  3. CENTRUM SILVER [Concomitant]
  4. ECOTRIN [Concomitant]

REACTIONS (2)
  - DYSURIA [None]
  - POLLAKIURIA [None]
